FAERS Safety Report 8068482-4 (Version None)
Quarter: 2012Q1

REPORT INFORMATION
  Report Type: 
  Country: None (occurrence: None)
  Receive Date: 20120124
  Receipt Date: 20111101
  Transmission Date: 20120608
  Serious: No
  Sender: FDA-Public Use
  Company Number: US-AMGEN-USASP2011057105

PATIENT
  Age: 72 Year
  Sex: Female

DRUGS (4)
  1. PROLIA [Suspect]
     Indication: OSTEOPOROSIS POSTMENOPAUSAL
     Dosage: 60 MG, Q6MO
     Dates: start: 20110629
  2. LISINOPRIL AND HYDROCHLOROTHIAZIDE [Concomitant]
  3. VITAMINS                           /00067501/ [Concomitant]
  4. AMLODIPINE [Concomitant]

REACTIONS (1)
  - HERPES ZOSTER [None]
